FAERS Safety Report 6168350-9 (Version None)
Quarter: 2009Q2

REPORT INFORMATION
  Report Type: 
  Country: None (occurrence: None)
  Receive Date: 20090427
  Receipt Date: 20090415
  Transmission Date: 20091009
  Serious: Yes (Other)
  Sender: FDA-Public Use
  Company Number: US-NOVOPROD-286092

PATIENT
  Sex: Female
  Weight: 120.64 kg

DRUGS (4)
  1. NOVOLOG [Suspect]
     Indication: INSULIN-REQUIRING TYPE 2 DIABETES MELLITUS
     Dosage: 7 IU, QD (SLIDING SCALE)
     Route: 058
     Dates: start: 20050101, end: 20090414
  2. NOVOLOG [Suspect]
  3. LISINOPRIL [Concomitant]
     Indication: HYPERTENSION
  4. LANTUS [Concomitant]
     Indication: INSULIN-REQUIRING TYPE 2 DIABETES MELLITUS

REACTIONS (8)
  - BLISTER [None]
  - HYPOAESTHESIA FACIAL [None]
  - HYPOAESTHESIA ORAL [None]
  - LIP SWELLING [None]
  - OEDEMA PERIPHERAL [None]
  - PRURITUS [None]
  - SKIN BURNING SENSATION [None]
  - URTICARIA [None]
